FAERS Safety Report 19180909 (Version 1)
Quarter: 2021Q2

REPORT INFORMATION
  Report Type: Spontaneous
  Country: US (occurrence: US)
  Receive Date: 20210426
  Receipt Date: 20210426
  Transmission Date: 20210717
  Serious: No
  Sender: FDA-Public Use
  Company Number: US-GLAXOSMITHKLINE-US2021086457

PATIENT
  Sex: Male

DRUGS (1)
  1. BREO ELLIPTA [Suspect]
     Active Substance: FLUTICASONE FUROATE\VILANTEROL TRIFENATATE
     Indication: DYSPNOEA
     Dosage: UNK UNK, QD
     Route: 055
     Dates: start: 20210416

REACTIONS (5)
  - Device use error [Unknown]
  - Drug ineffective [Not Recovered/Not Resolved]
  - Accidental overdose [Unknown]
  - Product prescribing issue [Unknown]
  - Product use in unapproved indication [Unknown]
